FAERS Safety Report 25178744 (Version 1)
Quarter: 2025Q2

REPORT INFORMATION
  Report Type: Spontaneous
  Country: FR (occurrence: FR)
  Receive Date: 20250409
  Receipt Date: 20250409
  Transmission Date: 20250716
  Serious: Yes (Hospitalization)
  Sender: FRESENIUS KABI
  Company Number: None

PATIENT
  Age: 33 Year
  Sex: Male
  Weight: 74.34 kg

DRUGS (16)
  1. PROPOFOL [Suspect]
     Active Substance: PROPOFOL
     Indication: Anaesthesia
     Route: 042
     Dates: start: 20250314, end: 20250314
  2. IOMERON [Suspect]
     Active Substance: IOMEPROL
     Indication: Imaging procedure
     Route: 042
     Dates: start: 20250313, end: 20250313
  3. IOMERON [Suspect]
     Active Substance: IOMEPROL
     Route: 042
     Dates: start: 20250315, end: 20250315
  4. CEFAZOLIN [Suspect]
     Active Substance: CEFAZOLIN
     Indication: Antibiotic prophylaxis
     Route: 042
     Dates: start: 20250314, end: 20250314
  5. SUFENTANIL [Suspect]
     Active Substance: SUFENTANIL
     Indication: Anaesthesia
     Route: 042
     Dates: start: 20250314, end: 20250314
  6. ACUPAN [Suspect]
     Active Substance: NEFOPAM HYDROCHLORIDE
     Indication: Pain
     Dosage: CONTINUOUS OVER 24 HOURS
     Route: 042
     Dates: start: 20250314, end: 20250314
  7. ACUPAN [Suspect]
     Active Substance: NEFOPAM HYDROCHLORIDE
     Dosage: CONTINUOUS OVER 24 HOURS
     Route: 042
     Dates: start: 20250315, end: 20250316
  8. IBUPROFEN [Suspect]
     Active Substance: IBUPROFEN
     Indication: Pain
     Route: 048
     Dates: start: 20250314, end: 20250314
  9. DOLIPRANE 500 mg, capsule [PARACETAMOL] [Concomitant]
     Indication: Pain
     Route: 048
     Dates: start: 20250314
  10. PHLOROGLUCINOL ARROW 80 mg, orodispersible tablet [PHLOROGLUCINOL HYDR [Concomitant]
     Indication: Pain
     Route: 048
     Dates: start: 20250314
  11. CONTRAMAL 100 mg/2 ml, solution for injection [TRAMADOL CHLORHYDRATE]. [Concomitant]
     Indication: Pain
     Dosage: CONTINUOUS OVER 24 HOURS
     Route: 042
     Dates: start: 20250315, end: 20250320
  12. PANTOPRAZOLE SUN PHARMA 40 mg, powder for injectable solution [PANTOPR [Concomitant]
     Indication: Product used for unknown indication
     Route: 048
     Dates: start: 20250315
  13. GAVISCON [ALGINIC ACID, SODIUM ALGINATE, ALGINIC (ACID), COLLOIDAL ALU [Concomitant]
     Indication: Product used for unknown indication
     Route: 048
     Dates: start: 20250315
  14. XATRAL 2.5 mg, film-coated tablet [ALFUZOSINE (CHLORHYDRATE D^)] [Concomitant]
     Indication: Pain
     Route: 048
     Dates: start: 20250316
  15. MACROGOL BIOGARAN 10 g, powder for oral solution in sachet [MACROGOL 4 [Concomitant]
     Indication: Constipation
     Route: 048
     Dates: start: 20250316
  16. ALPRAZOLAM ARROW 0.25 mg, scored tablet [ALPRAZOLAM] [Concomitant]
     Indication: Anxiety
     Route: 048
     Dates: start: 20250316

REACTIONS (1)
  - Symmetrical drug-related intertriginous and flexural exanthema [Recovering/Resolving]

NARRATIVE: CASE EVENT DATE: 20250316
